FAERS Safety Report 7552376-4 (Version None)
Quarter: 2011Q2

REPORT INFORMATION
  Report Type: 
  Country: None (occurrence: None)
  Receive Date: 20110616
  Receipt Date: 20050406
  Transmission Date: 20111010
  Serious: Yes (Hospitalization)
  Sender: FDA-Public Use
  Company Number: PHHO2005JP02968

PATIENT
  Sex: Female
  Weight: 140 kg

DRUGS (12)
  1. GRIMAC [Concomitant]
     Indication: GASTRIC ULCER
     Dates: start: 20020430
  2. D ALFA [Concomitant]
     Indication: OSTEOPOROSIS
     Dates: start: 20040622
  3. ALMARL [Concomitant]
     Indication: ESSENTIAL TREMOR
     Dates: start: 20020917
  4. DIOVAN [Suspect]
     Dosage: 40 MG, QD
     Route: 048
     Dates: start: 20030120, end: 20030216
  5. DIOVAN [Suspect]
     Dosage: 80 MG, QD
     Route: 048
     Dates: start: 20030217, end: 20030805
  6. SLOW-K [Concomitant]
     Indication: HYPOKALAEMIA
     Dates: start: 20020430
  7. WARFARIN SODIUM [Concomitant]
     Indication: ATRIAL FIBRILLATION
     Dates: start: 20020430
  8. DISOPYRAMIDE PHOSPHATE [Concomitant]
     Indication: ATRIAL FIBRILLATION
     Dates: start: 20020430
  9. DIOVAN [Suspect]
     Dosage: 40 MG, QD
     Route: 048
     Dates: start: 20030930
  10. LANIRAPID [Concomitant]
     Indication: CARDIAC FAILURE
     Dates: start: 20020430
  11. LASIX [Concomitant]
     Indication: CARDIAC FAILURE
     Dates: start: 20020430
  12. ZANTAC [Concomitant]
     Indication: GASTRIC ULCER
     Dates: start: 20020430

REACTIONS (4)
  - PRODUCTIVE COUGH [None]
  - PYREXIA [None]
  - C-REACTIVE PROTEIN INCREASED [None]
  - CHILLS [None]
